FAERS Safety Report 25541351 (Version 3)
Quarter: 2025Q3

REPORT INFORMATION
  Report Type: Spontaneous
  Country: EU (occurrence: EU)
  Receive Date: 20250711
  Receipt Date: 20250822
  Transmission Date: 20251021
  Serious: Yes (Other)
  Sender: ABBVIE
  Company Number: EU-PFIZER INC-PV202500080440

PATIENT
  Age: 20 Year

DRUGS (1)
  1. AVIBACTAM\AZTREONAM [Suspect]
     Active Substance: AVIBACTAM\AZTREONAM
     Indication: Stenotrophomonas infection
     Route: 042

REACTIONS (2)
  - Stenotrophomonas infection [Unknown]
  - Disease recurrence [Unknown]
